FAERS Safety Report 11163690 (Version 1)
Quarter: 2015Q2

REPORT INFORMATION
  Report Type: Spontaneous
  Country: US (occurrence: None)
  Receive Date: 20150603
  Receipt Date: 20150603
  Transmission Date: 20150821
  Serious: No
  Sender: FDA-Public Use
  Company Number: None

PATIENT
  Age: 58 Year
  Sex: Male
  Weight: 93.2 kg

DRUGS (1)
  1. BOCEPREVIR [Suspect]
     Active Substance: BOCEPREVIR
     Indication: HEPATITIS C
     Route: 048
     Dates: start: 20120323, end: 20120419

REACTIONS (3)
  - Swollen tongue [None]
  - Paraesthesia oral [None]
  - Angioedema [None]

NARRATIVE: CASE EVENT DATE: 20120416
